FAERS Safety Report 19176255 (Version 1)
Quarter: 2021Q2

REPORT INFORMATION
  Report Type: Spontaneous
  Country: US (occurrence: US)
  Receive Date: 20210424
  Receipt Date: 20210424
  Transmission Date: 20210717
  Serious: No
  Sender: FDA-Public Use
  Company Number: US-B.I. PHARMACEUTICALS,INC./RIDGEFIELD-2021-BI-097920

PATIENT

DRUGS (1)
  1. JARDIANCE [Suspect]
     Active Substance: EMPAGLIFLOZIN
     Indication: PRODUCT USED FOR UNKNOWN INDICATION

REACTIONS (14)
  - Blood glucose fluctuation [Not Recovered/Not Resolved]
  - Cardiac murmur [Unknown]
  - Bone density abnormal [Unknown]
  - Mood swings [Unknown]
  - Weight increased [Unknown]
  - Hypothyroidism [Unknown]
  - Pollakiuria [Unknown]
  - Thyroxine decreased [Unknown]
  - Palpitations [Unknown]
  - Vertigo [Unknown]
  - Feeling abnormal [Unknown]
  - Lacrimation increased [Unknown]
  - Tri-iodothyronine [Unknown]
  - Condition aggravated [Unknown]
